FAERS Safety Report 16166211 (Version 1)
Quarter: 2019Q2

REPORT INFORMATION
  Report Type: Report from Study
  Country: IT (occurrence: IT)
  Receive Date: 20190406
  Receipt Date: 20190406
  Transmission Date: 20190711
  Serious: Yes (Other)
  Sender: FDA-Public Use
  Company Number: IT-ACCORD-119026

PATIENT
  Age: 82 Year
  Sex: Male

DRUGS (8)
  1. FUROSEMIDE/SPIRONOLACTONE [Concomitant]
     Dosage: STRENGTH 25 MG + 37 MG
  2. COUMADIN [Concomitant]
     Active Substance: WARFARIN SODIUM
     Indication: ATRIAL FIBRILLATION
     Dosage: STRENGTH 5 MG
  3. POTASSIUM [Concomitant]
     Active Substance: POTASSIUM
     Dosage: STRENGTH 600 MG
     Route: 048
  4. NORVASC [Concomitant]
     Active Substance: AMLODIPINE BESYLATE
     Dosage: STRENGTH 5 MG
  5. ALLOPURINOL. [Suspect]
     Active Substance: ALLOPURINOL
     Indication: HYPERURICAEMIA
     Route: 048
     Dates: start: 20190201, end: 20190203
  6. LANOXIN [Concomitant]
     Active Substance: DIGOXIN
     Dosage: STRENGTH 0.125 MG
  7. BISOPROLOL [Concomitant]
     Active Substance: BISOPROLOL
     Route: 048
  8. OMNIC [Concomitant]
     Active Substance: TAMSULOSIN HYDROCHLORIDE
     Dosage: STRENGTH 0.4 MG

REACTIONS (4)
  - Eyelid oedema [Recovering/Resolving]
  - Urticaria [Recovering/Resolving]
  - Erythema [Recovering/Resolving]
  - Localised oedema [Recovering/Resolving]

NARRATIVE: CASE EVENT DATE: 20190201
